FAERS Safety Report 10047565 (Version 1)
Quarter: 2014Q1

REPORT INFORMATION
  Report Type: Spontaneous
  Country: US (occurrence: None)
  Receive Date: 20140327
  Receipt Date: 20140327
  Transmission Date: 20141002
  Serious: Yes (Other)
  Sender: FDA-Public Use
  Company Number: C14 009 AE

PATIENT
  Age: 10 Month
  Sex: Male
  Weight: 8.2 kg

DRUGS (1)
  1. FIRST - LANSOPRAZOLE (3 MG/ML) [Suspect]
     Indication: GASTROOESOPHAGEAL REFLUX DISEASE
     Dosage: 4 ML TWICE DAILY ORALLY
     Route: 048

REACTIONS (8)
  - Liquid product physical issue [None]
  - Drug ineffective [None]
  - Nasopharyngitis [None]
  - Ear infection [None]
  - Gastrointestinal sounds abnormal [None]
  - Product compounding quality issue [None]
  - Product colour issue [None]
  - Liquid product physical issue [None]
